FAERS Safety Report 4503987-1 (Version None)
Quarter: 2004Q3

REPORT INFORMATION
  Report Type: 
  Country: None (occurrence: None)
  Receive Date: 20040927
  Receipt Date: 20040816
  Transmission Date: 20050211
  Serious: No
  Sender: FDA-Public Use
  Company Number: USA040875718

PATIENT
  Age: 8 Year
  Sex: Female

DRUGS (2)
  1. STRATTERA [Suspect]
     Indication: DISTURBANCE IN ATTENTION
     Dosage: 18 MG IN THE MORNING
     Dates: start: 20040813, end: 20040814
  2. PAXIL [Concomitant]

REACTIONS (3)
  - NAUSEA [None]
  - SOMNOLENCE [None]
  - TIC [None]
